FAERS Safety Report 14433029 (Version 2)
Quarter: 2018Q1

REPORT INFORMATION
  Report Type: Spontaneous
  Country: FR (occurrence: FR)
  Receive Date: 20180124
  Receipt Date: 20180125
  Transmission Date: 20180509
  Serious: Yes (Hospitalization)
  Sender: FDA-Public Use
  Company Number: FR-CIPLA LTD.-2018FR01613

PATIENT

DRUGS (2)
  1. CARBOPLATIN. [Suspect]
     Active Substance: CARBOPLATIN
     Indication: LUNG SQUAMOUS CELL CARCINOMA METASTATIC
     Dosage: 215 MG/M2, UNK
     Route: 042
     Dates: start: 20170918, end: 20170918
  2. VINORELBINE [Suspect]
     Active Substance: VINORELBINE\VINORELBINE TARTRATE
     Indication: LUNG SQUAMOUS CELL CARCINOMA METASTATIC
     Dosage: 30 MG/M2, UNK
     Route: 042
     Dates: start: 20170918, end: 20170925

REACTIONS (4)
  - Septic shock [Recovered/Resolved]
  - Neutropenic colitis [Recovered/Resolved]
  - Pancytopenia [Recovered/Resolved]
  - Acute kidney injury [Recovered/Resolved]

NARRATIVE: CASE EVENT DATE: 20170928
